FAERS Safety Report 12234618 (Version 1)
Quarter: 2016Q2

REPORT INFORMATION
  Report Type: Report from Study
  Country: CN (occurrence: CN)
  Receive Date: 20160404
  Receipt Date: 20160404
  Transmission Date: 20160815
  Serious: Yes (Other)
  Sender: FDA-Public Use
  Company Number: PHHY2016CN042824

PATIENT
  Age: 33 Year
  Sex: Male

DRUGS (67)
  1. MYFORTIC [Suspect]
     Active Substance: MYCOPHENOLATE SODIUM
     Dosage: 1080 MG, QD
     Route: 065
     Dates: start: 20151206
  2. BASILIXIMAB [Suspect]
     Active Substance: BASILIXIMAB
     Indication: PROPHYLAXIS
     Dosage: 20 MG, QD
     Route: 065
     Dates: start: 20151204, end: 20151204
  3. TACROLIMUS. [Suspect]
     Active Substance: TACROLIMUS
     Dosage: 7.5 MG, QD
     Route: 065
     Dates: start: 20151221, end: 20151222
  4. ADALAT [Concomitant]
     Active Substance: NIFEDIPINE
     Dosage: 30 MG, SOS
     Route: 042
     Dates: start: 20151206, end: 20151206
  5. LIVARACINE [Concomitant]
     Indication: ANTICOAGULANT THERAPY
     Dosage: 2500 IU, SOS
     Route: 061
     Dates: start: 20151211, end: 20151211
  6. NITRENDIPINE [Concomitant]
     Active Substance: NITRENDIPINE
     Indication: BLOOD PRESSURE INCREASED
     Dosage: 10 MG, SOS
     Route: 048
     Dates: start: 20151212, end: 20151212
  7. ALBUMIN HUMAN [Concomitant]
     Active Substance: ALBUMIN HUMAN
     Indication: SUPPLEMENTATION THERAPY
     Dosage: 10 G, SOS
     Route: 042
     Dates: start: 20151203, end: 20151203
  8. SMECTA [Concomitant]
     Active Substance: MONTMORILLONITE
     Indication: DIARRHOEA
     Dosage: 9 G, UNK
     Route: 048
     Dates: start: 20151206, end: 20151206
  9. MUCOSOLVAN [Concomitant]
     Active Substance: AMBROXOL HYDROCHLORIDE
     Dosage: 30 MG, QD
     Route: 042
     Dates: start: 20151204, end: 20151205
  10. MYFORTIC [Suspect]
     Active Substance: MYCOPHENOLATE SODIUM
     Dosage: 1440 MG, QD
     Route: 065
     Dates: start: 20151204, end: 20151205
  11. ALPROSTADIL. [Concomitant]
     Active Substance: ALPROSTADIL
     Dosage: 10 DF, QD
     Route: 042
     Dates: start: 20151204, end: 20151229
  12. SMECTA [Concomitant]
     Active Substance: MONTMORILLONITE
     Dosage: 3 G, UNK
     Route: 042
     Dates: start: 20151208, end: 20151208
  13. FUROSEMIDE. [Concomitant]
     Active Substance: FUROSEMIDE
     Indication: POLYURIA
     Dosage: 40 MG, 80 MG, SOS
     Route: 042
     Dates: start: 20151204, end: 20151204
  14. FUROSEMIDE. [Concomitant]
     Active Substance: FUROSEMIDE
     Dosage: 40 MG, SOS
     Route: 042
     Dates: start: 20151222, end: 20151222
  15. CRAVIT [Concomitant]
     Active Substance: LEVOFLOXACIN
     Indication: INFECTION PROPHYLAXIS
  16. METHYLPREDNISOLONE. [Suspect]
     Active Substance: METHYLPREDNISOLONE
     Dosage: 40 MG, SOS
     Route: 042
     Dates: start: 20151225, end: 20151225
  17. PREDNISONE. [Suspect]
     Active Substance: PREDNISONE
     Indication: PROPHYLAXIS
     Dosage: 20 MG, QD
     Route: 065
     Dates: start: 20151206
  18. SODIUM CHLORIDE COMPOUND INJECTION [Concomitant]
     Dosage: 50 ML, QD
     Route: 042
     Dates: start: 20151204, end: 20151207
  19. SODIUM CHLORIDE COMPOUND INJECTION [Concomitant]
     Dosage: 50 ML, (SOS)
     Route: 042
     Dates: start: 20151218, end: 20151218
  20. LIVARACINE [Concomitant]
     Dosage: 2500 IU, SOS
     Route: 061
     Dates: start: 20151225, end: 20151225
  21. MAGNESIUM ISOGLYCYRRHIZINATE [Concomitant]
     Active Substance: MAGNESIUM ISOGLYCYRRHIZINATE
     Indication: PROPHYLAXIS
     Dosage: 20 ML, SOS
     Route: 042
     Dates: start: 20151208, end: 20151208
  22. CEFAZOLIN SODIUM. [Concomitant]
     Active Substance: CEFAZOLIN SODIUM
     Indication: SKIN TEST
     Dosage: 500 MG, SOS
     Route: 061
     Dates: start: 20151204, end: 20151204
  23. WEI JIA NENG [Concomitant]
     Dosage: 2000 MG, QD
     Route: 042
     Dates: start: 20151204, end: 20151229
  24. CETIRIZINE HYDROCHLORIDE. [Concomitant]
     Active Substance: CETIRIZINE HYDROCHLORIDE
     Dosage: 10 MG, SOS
     Route: 048
     Dates: start: 20151218, end: 20151218
  25. FUROSEMIDE. [Concomitant]
     Active Substance: FUROSEMIDE
     Dosage: 40 MG, SOS
     Route: 042
     Dates: start: 20151205, end: 20151205
  26. LEVOCARNITINE. [Concomitant]
     Active Substance: LEVOCARNITINE
     Dosage: 1 DF, QD
     Route: 042
     Dates: start: 20151204, end: 20151229
  27. MYFORTIC [Suspect]
     Active Substance: MYCOPHENOLATE SODIUM
     Indication: RENAL TRANSPLANT
     Dosage: 720 MG, QD
     Route: 065
     Dates: start: 20151204, end: 20151204
  28. SODIUM CHLORIDE COMPOUND INJECTION [Concomitant]
     Dosage: 1500 ML, (SOS)
     Route: 042
     Dates: start: 20151204, end: 20151204
  29. BETALOC [Concomitant]
     Active Substance: METOPROLOL TARTRATE
     Dosage: 23 MG, SOS
     Route: 048
     Dates: start: 20151213, end: 20151213
  30. PHENOBARBITAL. [Concomitant]
     Active Substance: PHENOBARBITAL
     Indication: SEDATION
     Dosage: 100 MG, SOS
     Route: 030
     Dates: start: 20151203, end: 20151203
  31. SODIUM LACTATE. [Concomitant]
     Active Substance: SODIUM LACTATE
     Indication: FLUID REPLACEMENT
     Dosage: 1500 ML, 500 ML, SOS
     Route: 042
     Dates: start: 20151204, end: 20151204
  32. MUCOSOLVAN [Concomitant]
     Active Substance: AMBROXOL HYDROCHLORIDE
     Indication: LUNG DISORDER
     Dosage: 30 MG, SOS
     Route: 042
     Dates: start: 20151204, end: 20151204
  33. TACROLIMUS. [Suspect]
     Active Substance: TACROLIMUS
     Dosage: 8 MG, QD
     Route: 065
     Dates: start: 20151223
  34. SODIUM CHLORIDE COMPOUND INJECTION [Concomitant]
     Dosage: 100 ML, (SOS)
     Route: 042
     Dates: start: 20151211, end: 20151211
  35. SCOPOLAMINE HYDROBROMIDE. [Concomitant]
     Active Substance: SCOPOLAMINE HYDROBROMIDE
     Indication: GASTROINTESTINAL DISORDER
     Dosage: 300 DF (TAB), SOS
     Route: 030
     Dates: start: 20151203, end: 20151203
  36. CETIRIZINE HYDROCHLORIDE. [Concomitant]
     Active Substance: CETIRIZINE HYDROCHLORIDE
     Dosage: 10 MG, SOS
     Route: 048
     Dates: start: 20151225, end: 20151225
  37. ERYTHROPOIETIN HUMAN [Concomitant]
     Indication: RED BLOOD CELL COUNT DECREASED
     Dosage: 9999 IU, SOS
     Route: 061
     Dates: start: 20151208, end: 20151208
  38. ADALAT [Concomitant]
     Active Substance: NIFEDIPINE
     Dosage: 30 MG, QD
     Route: 042
     Dates: start: 20151207, end: 20151229
  39. MICARDIS [Concomitant]
     Active Substance: TELMISARTAN
     Indication: BLOOD PRESSURE INCREASED
     Dosage: 80 MG, SOS
     Route: 042
     Dates: start: 20151209, end: 20151209
  40. ALBUMIN HUMAN [Concomitant]
     Active Substance: ALBUMIN HUMAN
     Dosage: 10 G, QD
     Route: 042
     Dates: start: 20151207, end: 20151215
  41. DILTIAZEM HYDROCHLORIDE. [Concomitant]
     Active Substance: DILTIAZEM HYDROCHLORIDE
     Indication: DRUG LEVEL DECREASED
     Dosage: 30 MG, BID
     Route: 048
     Dates: start: 20151211, end: 20151221
  42. PROMETHAZINE HYDROCHLORIDE. [Concomitant]
     Active Substance: PROMETHAZINE HYDROCHLORIDE
     Dosage: 25 MG, SOS
     Route: 030
     Dates: start: 20151218, end: 20151218
  43. FUROSEMIDE. [Concomitant]
     Active Substance: FUROSEMIDE
     Dosage: 40 MG, SOS
     Route: 042
     Dates: start: 20151225, end: 20151225
  44. LEVOCARNITINE. [Concomitant]
     Active Substance: LEVOCARNITINE
     Indication: PROPHYLAXIS
     Dosage: 1 DF, SOS
     Route: 042
     Dates: start: 20151204, end: 20151204
  45. LEVOCARNITINE. [Concomitant]
     Active Substance: LEVOCARNITINE
     Dosage: 1 DF, QD
     Route: 042
     Dates: start: 20151204, end: 20151205
  46. MUCOSOLVAN [Concomitant]
     Active Substance: AMBROXOL HYDROCHLORIDE
     Dosage: 30 MG, QD
     Route: 042
     Dates: start: 20151205, end: 20151207
  47. CRAVIT [Concomitant]
     Active Substance: LEVOFLOXACIN
     Indication: INFLAMMATION
     Dosage: 100 ML, SOS
     Route: 042
     Dates: start: 20151203, end: 20151203
  48. BASILIXIMAB [Suspect]
     Active Substance: BASILIXIMAB
     Dosage: 20 MG, QD
     Route: 065
     Dates: start: 20151207, end: 20151207
  49. METHYLPREDNISOLONE. [Suspect]
     Active Substance: METHYLPREDNISOLONE
     Indication: PROPHYLAXIS
     Dosage: 500 MG, QD
     Route: 065
     Dates: start: 20151203, end: 20151206
  50. METHYLPREDNISOLONE. [Suspect]
     Active Substance: METHYLPREDNISOLONE
     Indication: HYPERSENSITIVITY
     Dosage: 40 MG, SOS
     Route: 042
     Dates: start: 20151211, end: 20151211
  51. SODIUM CHLORIDE COMPOUND INJECTION [Concomitant]
     Indication: INFUSION
     Dosage: 100 ML, (SOS)
     Route: 042
     Dates: start: 20151203, end: 20151203
  52. BETALOC [Concomitant]
     Active Substance: METOPROLOL TARTRATE
     Indication: BLOOD PRESSURE INCREASED
     Dosage: 25 MG, SOS
     Route: 048
     Dates: start: 20151212, end: 20151212
  53. DILTIAZEM HYDROCHLORIDE. [Concomitant]
     Active Substance: DILTIAZEM HYDROCHLORIDE
     Dosage: 30 MG, QD
     Route: 048
     Dates: start: 20151221, end: 20151229
  54. PROMETHAZINE HYDROCHLORIDE. [Concomitant]
     Active Substance: PROMETHAZINE HYDROCHLORIDE
     Indication: HYPERSENSITIVITY
     Dosage: 25 MG, SOS
     Route: 030
     Dates: start: 20151211, end: 20151211
  55. PROMETHAZINE HYDROCHLORIDE. [Concomitant]
     Active Substance: PROMETHAZINE HYDROCHLORIDE
     Dosage: 25 MG, SOS
     Route: 030
     Dates: start: 20151225, end: 20151225
  56. ERYTHROPOIETIN HUMAN [Concomitant]
     Dosage: 9999 IU, QD
     Route: 042
     Dates: start: 20151208, end: 20151229
  57. METHYLPREDNISOLONE. [Suspect]
     Active Substance: METHYLPREDNISOLONE
     Dosage: 40 MG, SOS
     Route: 042
     Dates: start: 20151218, end: 20151218
  58. TACROLIMUS. [Suspect]
     Active Substance: TACROLIMUS
     Indication: PROPHYLAXIS
     Dosage: 7 MG, QD
     Route: 065
     Dates: start: 20151204, end: 20151220
  59. OMEPRAZOLE SODIUM [Concomitant]
     Active Substance: OMEPRAZOLE SODIUM
     Indication: PROPHYLAXIS
     Dosage: 40 MG, (SOS)
     Route: 042
     Dates: start: 20151204, end: 20151204
  60. ADALAT [Concomitant]
     Active Substance: NIFEDIPINE
     Indication: BLOOD PRESSURE INCREASED
     Dosage: 30 MG, SOS
     Route: 048
     Dates: start: 20151203, end: 20151203
  61. LIVARACINE [Concomitant]
     Dosage: 2500 IU, QD
     Route: 061
     Dates: start: 20151218, end: 20151218
  62. ALPROSTADIL. [Concomitant]
     Active Substance: ALPROSTADIL
     Indication: PERIPHERAL VASCULAR DISORDER
     Dosage: 10 DF (TAB), SOS
     Route: 042
     Dates: start: 20151204, end: 20151204
  63. PANTOPRAZOLE [Concomitant]
     Active Substance: PANTOPRAZOLE SODIUM
     Indication: PROPHYLAXIS
     Dosage: 40 MG, BID
     Route: 042
     Dates: start: 20151204, end: 20151209
  64. ALBUMIN HUMAN [Concomitant]
     Active Substance: ALBUMIN HUMAN
     Dosage: 10 G, QD
     Route: 042
     Dates: start: 20151204, end: 20151207
  65. MAGNESIUM ISOGLYCYRRHIZINATE [Concomitant]
     Active Substance: MAGNESIUM ISOGLYCYRRHIZINATE
     Dosage: 20 ML, QD
     Route: 042
     Dates: start: 20151208, end: 20151229
  66. WEI JIA NENG [Concomitant]
     Indication: PROPHYLAXIS
     Dosage: 2000 MG, SOS
     Route: 042
     Dates: start: 20151204, end: 20151204
  67. CETIRIZINE HYDROCHLORIDE. [Concomitant]
     Active Substance: CETIRIZINE HYDROCHLORIDE
     Indication: HYPERSENSITIVITY
     Dosage: 10 MG, SOS
     Route: 048
     Dates: start: 20151211, end: 20151211

REACTIONS (6)
  - Haemoglobin decreased [Unknown]
  - Diarrhoea [Recovering/Resolving]
  - Blood creatinine increased [Unknown]
  - Blood urine present [Unknown]
  - Blood urea increased [Unknown]
  - Protein urine present [Unknown]

NARRATIVE: CASE EVENT DATE: 20151206
